FAERS Safety Report 7076552-2 (Version None)
Quarter: 2010Q4

REPORT INFORMATION
  Report Type: 
  Country: None (occurrence: None)
  Receive Date: 20101101
  Receipt Date: 20101021
  Transmission Date: 20110411
  Serious: Yes (Other)
  Sender: FDA-Public Use
  Company Number: US-PFIZER INC-2010134594

PATIENT
  Sex: Female
  Weight: 65.76 kg

DRUGS (4)
  1. CHANTIX [Suspect]
     Indication: SMOKING CESSATION THERAPY
     Dosage: UNK
     Dates: start: 20061001, end: 20061001
  2. CHANTIX [Suspect]
     Dosage: UNK
     Dates: start: 20070101, end: 20070101
  3. CHANTIX [Suspect]
     Dosage: 1 MG, UNK
     Dates: start: 20101020
  4. CELEXA [Concomitant]
     Indication: DEPRESSION
     Dosage: UNK

REACTIONS (6)
  - CONFUSIONAL STATE [None]
  - DYSPNOEA [None]
  - EYE DISORDER [None]
  - VASOCONSTRICTION [None]
  - VISION BLURRED [None]
  - VISUAL IMPAIRMENT [None]
